FAERS Safety Report 4842847-3 (Version None)
Quarter: 2005Q4

REPORT INFORMATION
  Report Type: 
  Country: None (occurrence: None)
  Receive Date: 20051201
  Receipt Date: 20051017
  Transmission Date: 20060501
  Serious: Yes (Life-Threatening)
  Sender: FDA-Public Use
  Company Number: JP-BRISTOL-MYERS SQUIBB COMPANY-13147764

PATIENT
  Age: 38 Year
  Sex: Male

DRUGS (8)
  1. MAXIPIME [Suspect]
     Indication: PNEUMONIA
     Route: 042
     Dates: start: 20051016, end: 20051017
  2. MAXIPIME [Suspect]
     Indication: SEPSIS
     Route: 042
     Dates: start: 20051016, end: 20051017
  3. CRAVIT [Suspect]
     Route: 048
     Dates: start: 20051013, end: 20051017
  4. KLARICID [Suspect]
     Route: 048
     Dates: start: 20051013, end: 20051017
  5. GASTER D [Concomitant]
     Route: 048
     Dates: start: 20051011
  6. RINGER'S [Concomitant]
     Route: 042
     Dates: start: 20051005
  7. AMINOFLUID [Concomitant]
     Route: 042
     Dates: start: 20051005
  8. PANTHENOL [Concomitant]
     Route: 042
     Dates: start: 20051005

REACTIONS (9)
  - BLOOD CREATININE INCREASED [None]
  - BODY TEMPERATURE INCREASED [None]
  - DISSEMINATED INTRAVASCULAR COAGULATION [None]
  - DYSPNOEA [None]
  - HAEMODIALYSIS [None]
  - LIVER DISORDER [None]
  - RENAL DISORDER [None]
  - RESPIRATORY DISORDER [None]
  - URINE OUTPUT DECREASED [None]
